FAERS Safety Report 8809407 (Version 28)
Quarter: 2015Q2

REPORT INFORMATION
  Report Type: Report from Study
  Country: CA (occurrence: CA)
  Receive Date: 20120926
  Receipt Date: 20150610
  Transmission Date: 20150821
  Serious: Yes (Hospitalization, Other)
  Sender: FDA-Public Use
  Company Number: CA-ROCHE-1075336

PATIENT
  Age: 71 Year
  Sex: Female
  Weight: 60 kg

DRUGS (25)
  1. PROLIA [Concomitant]
     Active Substance: DENOSUMAB
     Dosage: 60 MG/ML
     Route: 058
  2. ACETAMINOPHEN. [Concomitant]
     Active Substance: ACETAMINOPHEN
     Route: 048
  3. SYMBICORT [Concomitant]
     Active Substance: BUDESONIDE\FORMOTEROL FUMARATE DIHYDRATE
     Dosage: 2 INHALATIONS, TWICE DAILY
     Route: 050
  4. EURO-FOLIC [Concomitant]
     Route: 048
  5. ACTEMRA [Suspect]
     Active Substance: TOCILIZUMAB
     Indication: RHEUMATOID ARTHRITIS
     Route: 042
     Dates: start: 20110512
  6. ACTEMRA [Suspect]
     Active Substance: TOCILIZUMAB
     Route: 042
     Dates: start: 20110613
  7. ROSUVASTATIN [Concomitant]
     Active Substance: ROSUVASTATIN
     Route: 048
  8. PREGABALIN. [Concomitant]
     Active Substance: PREGABALIN
     Route: 048
  9. SPIRIVA [Concomitant]
     Active Substance: TIOTROPIUM BROMIDE MONOHYDRATE
     Route: 050
  10. ACTEMRA [Suspect]
     Active Substance: TOCILIZUMAB
     Route: 042
     Dates: start: 20140421
  11. WINPRED [Concomitant]
     Active Substance: PREDNISONE
     Route: 048
  12. PREDNISONE. [Concomitant]
     Active Substance: PREDNISONE
     Route: 065
  13. ACTEMRA [Suspect]
     Active Substance: TOCILIZUMAB
     Route: 042
     Dates: start: 20140718
  14. PRO-AAS [Concomitant]
     Route: 048
  15. METHOTREXATE [Concomitant]
     Active Substance: METHOTREXATE
     Route: 048
  16. PRO-TRIAZIDE [Concomitant]
     Dosage: 50/25 MG
     Route: 048
  17. ACTEMRA [Suspect]
     Active Substance: TOCILIZUMAB
     Route: 042
     Dates: start: 20140523
  18. PREDNISONE. [Concomitant]
     Active Substance: PREDNISONE
     Route: 048
  19. AMLODIPINE [Concomitant]
     Active Substance: AMLODIPINE BESYLATE
     Route: 048
  20. LANSOPRAZOLE. [Concomitant]
     Active Substance: LANSOPRAZOLE
     Route: 048
  21. ACTEMRA [Suspect]
     Active Substance: TOCILIZUMAB
     Route: 042
     Dates: start: 20140620
  22. ATIVAN [Concomitant]
     Active Substance: LORAZEPAM
     Dosage: BEFORE BED AS REQUIRED
     Route: 048
  23. BRICANYL [Concomitant]
     Active Substance: TERBUTALINE SULFATE
     Route: 050
  24. SYSTANE ULTRA [Concomitant]
     Active Substance: POLYETHYLENE GLYCOL 400\PROPYLENE GLYCOL
     Dosage: 1 DROP
     Route: 047
  25. D-TABS [Concomitant]
     Active Substance: CHOLECALCIFEROL
     Route: 048

REACTIONS (37)
  - Lip neoplasm [Not Recovered/Not Resolved]
  - Wound secretion [Recovered/Resolved]
  - Furuncle [Recovered/Resolved]
  - Skeletal injury [Recovered/Resolved]
  - Skin ulcer [Not Recovered/Not Resolved]
  - Eye swelling [Recovering/Resolving]
  - Abdominal pain [Not Recovered/Not Resolved]
  - Diarrhoea [Not Recovered/Not Resolved]
  - Pain in extremity [Not Recovered/Not Resolved]
  - Weight increased [Not Recovered/Not Resolved]
  - Fatigue [Not Recovered/Not Resolved]
  - Wound [Unknown]
  - Blood pressure decreased [Unknown]
  - Erythema [Unknown]
  - Rheumatoid factor increased [Unknown]
  - Musculoskeletal pain [Not Recovered/Not Resolved]
  - Fatigue [Not Recovered/Not Resolved]
  - Gait disturbance [Not Recovered/Not Resolved]
  - Medication error [Unknown]
  - Infection [Not Recovered/Not Resolved]
  - Localised infection [Recovered/Resolved]
  - Rheumatoid vasculitis [Unknown]
  - Back pain [Not Recovered/Not Resolved]
  - C-reactive protein increased [Unknown]
  - Blood pressure increased [Not Recovered/Not Resolved]
  - Decreased appetite [Not Recovered/Not Resolved]
  - Spinal pain [Not Recovered/Not Resolved]
  - Mass [Not Recovered/Not Resolved]
  - Fall [Unknown]
  - Nasopharyngitis [Recovered/Resolved]
  - Oedema peripheral [Unknown]
  - Fatigue [Not Recovered/Not Resolved]
  - Pneumonia [Recovered/Resolved]
  - Dementia [Unknown]
  - Musculoskeletal stiffness [Not Recovered/Not Resolved]
  - Feeling hot [Unknown]
  - Rheumatoid vasculitis [Not Recovered/Not Resolved]

NARRATIVE: CASE EVENT DATE: 2012
